FAERS Safety Report 8771992 (Version 1)
Quarter: 2012Q4

REPORT INFORMATION
  Report Type: 
  Country: NL (occurrence: NL)
  Receive Date: 20120905
  Receipt Date: 20120905
  Transmission Date: 20130627
  Serious: Yes (Other)
  Sender: FDA-Public Use
  Company Number: NL-MYLANLABS-2012S1017428

PATIENT
  Age: 22 Year
  Sex: Female

DRUGS (1)
  1. KETAMINE [Suspect]
     Indication: SUBSTANCE USE
     Dosage: Every weekend
     Route: 045

REACTIONS (7)
  - Pollakiuria [Unknown]
  - Pollakiuria [Unknown]
  - Dysuria [Unknown]
  - Haematuria [Unknown]
  - Substance use [Unknown]
  - Drug abuse [Unknown]
  - Drug dispensing error [None]
